FAERS Safety Report 5487721-7 (Version None)
Quarter: 2007Q4

REPORT INFORMATION
  Report Type: 
  Country: None (occurrence: None)
  Receive Date: 20071015
  Receipt Date: 20071015
  Transmission Date: 20080405
  Serious: Yes (Other)
  Sender: FDA-Public Use
  Company Number: None

PATIENT
  Sex: Male
  Weight: 118.2981 kg

DRUGS (2)
  1. CARVEDILOL [Suspect]
     Indication: HYPERTENSION
     Dosage: 6.25 ONCE DAILY PO
     Route: 048
     Dates: start: 20070921
  2. CARVEDILOL [Suspect]
     Indication: HYPERTENSION
     Dosage: 6.25 ONCE DAILY PO
     Route: 048
     Dates: start: 20071010

REACTIONS (4)
  - BLOOD PRESSURE INCREASED [None]
  - PRURITUS [None]
  - RASH PAPULAR [None]
  - THERAPEUTIC RESPONSE UNEXPECTED WITH DRUG SUBSTITUTION [None]
